FAERS Safety Report 22781175 (Version 5)
Quarter: 2023Q4

REPORT INFORMATION
  Report Type: Report from Study
  Country: US (occurrence: US)
  Receive Date: 20230803
  Receipt Date: 20231009
  Transmission Date: 20240109
  Serious: Yes (Other)
  Sender: FDA-Public Use
  Company Number: US-BEH-2023161690

PATIENT
  Age: 43 Year
  Sex: Female
  Weight: 67.574 kg

DRUGS (2)
  1. HAEGARDA [Suspect]
     Active Substance: HUMAN C1-ESTERASE INHIBITOR
     Indication: Hereditary angioedema
     Dosage: 4000 INTERNATIONAL UNIT, BIW
     Route: 058
     Dates: start: 20230616
  2. HAEGARDA [Suspect]
     Active Substance: HUMAN C1-ESTERASE INHIBITOR
     Indication: Prophylaxis
     Dosage: 4000 INTERNATIONAL UNIT
     Route: 065
     Dates: start: 202306

REACTIONS (7)
  - Drug ineffective [Recovering/Resolving]
  - Hereditary angioedema [Not Recovered/Not Resolved]
  - Autoimmune disorder [Not Recovered/Not Resolved]
  - No adverse event [Not Recovered/Not Resolved]
  - Product distribution issue [Not Recovered/Not Resolved]
  - Vomiting [Not Recovered/Not Resolved]
  - Hereditary angioedema [Not Recovered/Not Resolved]

NARRATIVE: CASE EVENT DATE: 20230811
